FAERS Safety Report 6311112-X (Version None)
Quarter: 2009Q3

REPORT INFORMATION
  Report Type: 
  Country: None (occurrence: None)
  Receive Date: 20090817
  Receipt Date: 20090806
  Transmission Date: 20100115
  Serious: Yes (Other)
  Sender: FDA-Public Use
  Company Number: US-BAYER-200926590NA

PATIENT
  Age: 32 Year
  Sex: Female
  Weight: 59 kg

DRUGS (4)
  1. MIRENA [Suspect]
     Indication: CONTRACEPTION
     Route: 015
     Dates: start: 20090502, end: 20090715
  2. ZITHROMAX [Concomitant]
     Indication: DERMATITIS CONTACT
     Dates: start: 20090601
  3. PREDNISONE [Concomitant]
     Indication: DERMATITIS CONTACT
     Dates: start: 20090601
  4. PNV [Concomitant]

REACTIONS (4)
  - ABDOMINAL PAIN LOWER [None]
  - FATIGUE [None]
  - IUD MIGRATION [None]
  - RASH [None]
